FAERS Safety Report 5554851-0 (Version None)
Quarter: 2007Q4

REPORT INFORMATION
  Report Type: 
  Country: None (occurrence: None)
  Receive Date: 20071213
  Receipt Date: 20071205
  Transmission Date: 20080405
  Serious: Yes (Hospitalization)
  Sender: FDA-Public Use
  Company Number: BR-ABBOTT-07P-020-0424135-00

PATIENT
  Age: 50 Year
  Sex: Male
  Weight: 75 kg

DRUGS (9)
  1. HUMIRA [Suspect]
     Indication: ANKYLOSING SPONDYLITIS
     Route: 058
     Dates: start: 20070801, end: 20071101
  2. HUMIRA [Suspect]
     Indication: UVEITIS
  3. PREDNISONE [Interacting]
     Indication: ANKYLOSING SPONDYLITIS
     Route: 048
     Dates: start: 20070501
  4. PREDNISONE [Interacting]
     Indication: UVEITIS
     Route: 048
     Dates: end: 20071203
  5. PREDNISONE [Interacting]
     Route: 048
     Dates: start: 20071203
  6. METHOTREXATE [Concomitant]
     Indication: ANKYLOSING SPONDYLITIS
     Route: 048
     Dates: start: 20070501, end: 20071203
  7. METHOTREXATE [Concomitant]
     Indication: UVEITIS
     Dates: start: 20071203
  8. ETANERCEPT [Concomitant]
     Indication: ANKYLOSING SPONDYLITIS
     Dates: start: 20070501, end: 20070801
  9. ETANERCEPT [Concomitant]
     Indication: UVEITIS

REACTIONS (8)
  - ABDOMINAL DISTENSION [None]
  - ABDOMINAL PAIN [None]
  - CHOKING [None]
  - DIARRHOEA [None]
  - DRUG INTERACTION [None]
  - FATIGUE [None]
  - MUSCLE SPASMS [None]
  - WEIGHT INCREASED [None]
